FAERS Safety Report 7030534-5 (Version None)
Quarter: 2010Q4

REPORT INFORMATION
  Report Type: 
  Country: None (occurrence: None)
  Receive Date: 20101006
  Receipt Date: 20100927
  Transmission Date: 20110411
  Serious: Yes (Hospitalization, Other)
  Sender: FDA-Public Use
  Company Number: US-ASTRAZENECA-2010SE45506

PATIENT
  Age: 57 Year
  Sex: Female
  Weight: 78.5 kg

DRUGS (13)
  1. CRESTOR [Suspect]
     Route: 048
  2. LIPITOR [Suspect]
     Indication: BLOOD CHOLESTEROL INCREASED
  3. WELLBUTRIN [Suspect]
  4. PRISTIQ [Suspect]
     Indication: ANHEDONIA
     Route: 048
     Dates: start: 20100101
  5. EFFEXOR [Suspect]
     Dates: start: 20060101, end: 20060101
  6. EFFEXOR XR [Suspect]
     Dates: start: 20060101
  7. METOPROLOL TARTRATE [Concomitant]
     Indication: HYPERTENSION
  8. PROTONIX [Concomitant]
     Indication: GASTROOESOPHAGEAL REFLUX DISEASE
  9. MICARDIS [Concomitant]
     Indication: HYPERTENSION
  10. ZOCOR [Concomitant]
  11. KLONOPIN [Concomitant]
     Dosage: AS NEEDED
  12. PLAVIX [Concomitant]
  13. ACETYLSALICYLIC ACID SRT [Concomitant]

REACTIONS (17)
  - BRAIN INJURY [None]
  - DRUG HYPERSENSITIVITY [None]
  - GAIT DISTURBANCE [None]
  - HYPERPHAGIA [None]
  - INJURY [None]
  - MUSCULAR WEAKNESS [None]
  - PANIC ATTACK [None]
  - PSYCHOMOTOR HYPERACTIVITY [None]
  - PULMONARY OEDEMA [None]
  - RESPIRATORY TRACT INFECTION [None]
  - SINUS DISORDER [None]
  - SINUSITIS [None]
  - SOMNOLENCE [None]
  - TRANSIENT ISCHAEMIC ATTACK [None]
  - VASCULAR GRAFT [None]
  - VERTIGO [None]
  - WEIGHT INCREASED [None]
